FAERS Safety Report 23221369 (Version 1)
Quarter: 2023Q4

REPORT INFORMATION
  Report Type: Spontaneous
  Country: US (occurrence: US)
  Receive Date: 20231123
  Receipt Date: 20231123
  Transmission Date: 20240109
  Serious: No
  Sender: FDA-Public Use
  Company Number: US-STRIDES ARCOLAB LIMITED-2022SP016462

PATIENT
  Sex: Male

DRUGS (1)
  1. PROPAFENONE [Suspect]
     Active Substance: PROPAFENONE
     Indication: Product used for unknown indication
     Dosage: 325 MILLIGRAM (ER)
     Route: 065
     Dates: start: 20220217

REACTIONS (1)
  - Product dose omission issue [Unknown]
